FAERS Safety Report 16570134 (Version 1)
Quarter: 2019Q3

REPORT INFORMATION
  Report Type: Spontaneous
  Country: CN (occurrence: CN)
  Receive Date: 20190715
  Receipt Date: 20190715
  Transmission Date: 20191004
  Serious: Yes (Other)
  Sender: FDA-Public Use
  Company Number: CN-ROCHE-2352954

PATIENT
  Age: 42 Year
  Sex: Female

DRUGS (14)
  1. HERCEPTIN [Suspect]
     Active Substance: TRASTUZUMAB
     Indication: INVASIVE BREAST CARCINOMA
     Route: 041
     Dates: start: 20150302
  2. HERCEPTIN [Suspect]
     Active Substance: TRASTUZUMAB
     Route: 041
     Dates: start: 20171012
  3. GOSERELIN [Concomitant]
     Active Substance: GOSERELIN
     Route: 065
     Dates: start: 20171012
  4. DOCETAXEL. [Concomitant]
     Active Substance: DOCETAXEL
     Indication: INVASIVE BREAST CARCINOMA
     Route: 065
     Dates: start: 20150601
  5. DOCETAXEL. [Concomitant]
     Active Substance: DOCETAXEL
     Route: 065
     Dates: start: 20170518
  6. TAMOXIFEN [Concomitant]
     Active Substance: TAMOXIFEN
     Route: 048
  7. EPIRUBICIN [Concomitant]
     Active Substance: EPIRUBICIN
     Indication: INVASIVE BREAST CARCINOMA
     Route: 065
     Dates: start: 20150601
  8. HERCEPTIN [Suspect]
     Active Substance: TRASTUZUMAB
     Route: 041
  9. HERCEPTIN [Suspect]
     Active Substance: TRASTUZUMAB
     Route: 041
     Dates: start: 20170920
  10. CAPECITABINE. [Concomitant]
     Active Substance: CAPECITABINE
     Indication: INVASIVE BREAST CARCINOMA
     Route: 048
     Dates: start: 20170328
  11. DOCETAXEL. [Concomitant]
     Active Substance: DOCETAXEL
     Route: 065
     Dates: start: 20170920
  12. FULVESTRANT. [Concomitant]
     Active Substance: FULVESTRANT
     Route: 065
     Dates: start: 20171012
  13. CAPECITABINE. [Concomitant]
     Active Substance: CAPECITABINE
     Route: 048
     Dates: start: 20170518
  14. CYCLOPHOSPHAMIDE. [Concomitant]
     Active Substance: CYCLOPHOSPHAMIDE
     Indication: INVASIVE BREAST CARCINOMA
     Route: 065
     Dates: start: 20150601

REACTIONS (3)
  - Left ventricular dysfunction [Unknown]
  - Haemangioma of liver [Unknown]
  - Hepatic cyst [Unknown]
